FAERS Safety Report 6365689-9 (Version None)
Quarter: 2009Q3

REPORT INFORMATION
  Report Type: 
  Country: None (occurrence: None)
  Receive Date: 20090919
  Receipt Date: 20090818
  Transmission Date: 20100115
  Serious: No
  Sender: FDA-Public Use
  Company Number: US-ABBOTT-09P-163-0592884-00

PATIENT
  Sex: Male
  Weight: 72.64 kg

DRUGS (5)
  1. HUMIRA [Suspect]
     Indication: CROHN'S DISEASE
     Dates: start: 20080101
  2. PROTONIX [Concomitant]
     Indication: GASTROOESOPHAGEAL REFLUX DISEASE
  3. ALLEGRA D 24 HOUR [Concomitant]
     Indication: HYPERSENSITIVITY
  4. BENTYL [Concomitant]
     Indication: DRUG USE FOR UNKNOWN INDICATION
  5. UNKNOWN INTRAVENOUS ANEMIA MEDICATION [Concomitant]
     Indication: ANAEMIA
     Route: 042

REACTIONS (1)
  - WHITE BLOOD CELL COUNT INCREASED [None]
